FAERS Safety Report 19300869 (Version 1)
Quarter: 2021Q2

REPORT INFORMATION
  Report Type: Report from Study
  Country: None (occurrence: US)
  Receive Date: 20210524
  Receipt Date: 20210524
  Transmission Date: 20210717
  Serious: Yes (Life-Threatening, Hospitalization)
  Sender: FDA-Public Use
  Company Number: US-ABBVIE-21P-163-3816074-00

PATIENT
  Age: 35 Year
  Sex: Male
  Weight: 78 kg

DRUGS (12)
  1. BENZONATATE. [Concomitant]
     Active Substance: BENZONATATE
     Indication: COUGH
     Route: 048
     Dates: start: 20210224
  2. INSULIN LISPRO [Concomitant]
     Active Substance: INSULIN LISPRO
     Indication: HYPERGLYCAEMIA
     Dosage: SLIDING SCALE
     Route: 058
     Dates: start: 20210308
  3. VITAMIN C [Concomitant]
     Active Substance: ASCORBIC ACID
     Indication: COVID-19
     Route: 048
     Dates: start: 20210302
  4. VITAMIN D3 [Concomitant]
     Active Substance: CHOLECALCIFEROL
     Indication: COVID-19
     Route: 048
     Dates: start: 20210302
  5. ACETAMINOPHEN. [Concomitant]
     Active Substance: ACETAMINOPHEN
     Indication: PAIN
     Route: 048
     Dates: start: 20210223
  6. ONDANSTERON [Concomitant]
     Active Substance: ONDANSETRON
     Indication: NAUSEA
     Route: 042
     Dates: start: 20210223
  7. IBRUTINIB [Suspect]
     Active Substance: IBRUTINIB
     Indication: COVID-19
     Route: 048
     Dates: start: 20210223, end: 20210310
  8. DEXAMETHASONE. [Concomitant]
     Active Substance: DEXAMETHASONE
     Indication: COVID-19
     Route: 048
     Dates: start: 20210223, end: 20210303
  9. LOVENOX [Concomitant]
     Active Substance: ENOXAPARIN SODIUM
     Indication: ANTICOAGULANT THERAPY
     Route: 058
     Dates: start: 20210223, end: 20210311
  10. CODEINE?GUAIFENESIN [Concomitant]
     Active Substance: CODEINE PHOSPHATE\GUAIFENESIN
     Indication: COUGH
     Route: 048
     Dates: start: 20210224
  11. ZINC SULFATE. [Concomitant]
     Active Substance: ZINC SULFATE
     Indication: COVID-19
     Route: 048
     Dates: start: 20210302
  12. SOLU?MEDROL [Concomitant]
     Active Substance: METHYLPREDNISOLONE SODIUM SUCCINATE
     Indication: COVID-19 PNEUMONIA
     Route: 042
     Dates: start: 20210303

REACTIONS (1)
  - Pulmonary haemorrhage [Recovered/Resolved]

NARRATIVE: CASE EVENT DATE: 20210310
